APPROVED DRUG PRODUCT: INVIRASE
Active Ingredient: SAQUINAVIR MESYLATE
Strength: EQ 200MG BASE
Dosage Form/Route: CAPSULE;ORAL
Application: N020628 | Product #001
Applicant: HOFFMANN LA ROCHE INC
Approved: Dec 6, 1995 | RLD: Yes | RS: No | Type: DISCN